FAERS Safety Report 5880274-0 (Version None)
Quarter: 2008Q3

REPORT INFORMATION
  Report Type: 
  Country: None (occurrence: None)
  Receive Date: 20080912
  Receipt Date: 20080905
  Transmission Date: 20090109
  Serious: Yes (Life-Threatening, Hospitalization, Other)
  Sender: FDA-Public Use
  Company Number: PHBS2008US05628

PATIENT
  Age: 75 Year
  Sex: Female

DRUGS (11)
  1. LETROZOLE [Suspect]
     Indication: BREAST CANCER
  2. LETROZOLE [Interacting]
     Indication: DISEASE RECURRENCE
  3. SUNITINIB MALATE [Interacting]
     Indication: RENAL CANCER
  4. ALENDRONATE SODIUM [Concomitant]
  5. IRBESARTAN [Concomitant]
  6. DOCUSATE SODIUM [Concomitant]
  7. PROCHLORPERAZINE [Concomitant]
  8. CLONIDINE [Concomitant]
  9. LANSOPRAZOLE [Concomitant]
  10. FILGRASTIM [Concomitant]
  11. LEVOTHYROXINE SODIUM [Concomitant]

REACTIONS (37)
  - ABDOMINAL PAIN LOWER [None]
  - ACUTE HEPATIC FAILURE [None]
  - ALANINE AMINOTRANSFERASE INCREASED [None]
  - ARTHRALGIA [None]
  - ASPARTATE AMINOTRANSFERASE INCREASED [None]
  - BILIRUBIN CONJUGATED INCREASED [None]
  - BLOOD BILIRUBIN INCREASED [None]
  - BLOOD CREATINE PHOSPHOKINASE INCREASED [None]
  - BLOOD CREATININE INCREASED [None]
  - BLOOD UREA INCREASED [None]
  - CHOLELITHIASIS [None]
  - COAGULOPATHY [None]
  - DEHYDRATION [None]
  - DIARRHOEA [None]
  - DRUG INTERACTION [None]
  - DRY MOUTH [None]
  - FATIGUE [None]
  - GALLBLADDER DISORDER [None]
  - GRANULOMA [None]
  - HEPATIC CALCIFICATION [None]
  - HEPATIC CONGESTION [None]
  - HEPATIC CYST [None]
  - HEPATIC FUNCTION ABNORMAL [None]
  - HEPATIC STEATOSIS [None]
  - HEPATOCELLULAR INJURY [None]
  - HYPERAMMONAEMIA [None]
  - INTERNATIONAL NORMALISED RATIO INCREASED [None]
  - LETHARGY [None]
  - MENTAL STATUS CHANGES [None]
  - METASTASES TO LUNG [None]
  - METASTATIC NEOPLASM [None]
  - NEPHRECTOMY [None]
  - NEUTROPENIA [None]
  - RENAL CELL CARCINOMA [None]
  - RENAL FAILURE ACUTE [None]
  - THROMBECTOMY [None]
  - THROMBOCYTOPENIA [None]
